FAERS Safety Report 7029730-2 (Version None)
Quarter: 2010Q4

REPORT INFORMATION
  Report Type: 
  Country: None (occurrence: None)
  Receive Date: 20101005
  Receipt Date: 20101005
  Transmission Date: 20110411
  Serious: Yes (Life-Threatening)
  Sender: FDA-Public Use
  Company Number: None

PATIENT
  Sex: Male

DRUGS (1)
  1. TARKA [Suspect]
     Indication: HYPERTENSION
     Dosage: 1 TABLET ONCE DAILY PO
     Route: 048
     Dates: start: 20040101, end: 20100101

REACTIONS (3)
  - BLOOD PRESSURE INADEQUATELY CONTROLLED [None]
  - BLOOD PRESSURE INCREASED [None]
  - PRODUCT QUALITY ISSUE [None]
